FAERS Safety Report 6588904-5 (Version None)
Quarter: 2010Q1

REPORT INFORMATION
  Report Type: 
  Country: None (occurrence: None)
  Receive Date: 20100218
  Receipt Date: 20100210
  Transmission Date: 20100710
  Serious: Yes (Hospitalization)
  Sender: FDA-Public Use
  Company Number: CH-B.I. PHARMACEUTICALS,INC./RIDGEFIELD-2010-SI-00007SI

PATIENT
  Age: 69 Year
  Sex: Male
  Weight: 74 kg

DRUGS (3)
  1. PRADIF [Suspect]
     Indication: BENIGN PROSTATIC HYPERPLASIA
     Dosage: 400 MCG
     Route: 048
     Dates: start: 20091003, end: 20091204
  2. PREDNISON [Concomitant]
     Indication: POLYMYALGIA RHEUMATICA
  3. CALCIMAGON D3 [Concomitant]
     Dates: start: 20091001

REACTIONS (5)
  - CHOLESTATIC LIVER INJURY [None]
  - HEPATIC ENZYME INCREASED [None]
  - JAUNDICE [None]
  - LIVER INJURY [None]
  - PRURITUS [None]
